FAERS Safety Report 19006926 (Version 6)
Quarter: 2022Q1

REPORT INFORMATION
  Report Type: Spontaneous
  Country: JP (occurrence: JP)
  Receive Date: 20210315
  Receipt Date: 20220126
  Transmission Date: 20220423
  Serious: Yes (Death, Life-Threatening, Hospitalization, Other)
  Sender: FDA-Public Use
  Company Number: JP-JAZZ-2021-JP-004540

PATIENT
  Age: 50 Year
  Sex: Female
  Weight: 47.3 kg

DRUGS (2)
  1. DEFITELIO [Suspect]
     Active Substance: DEFIBROTIDE SODIUM
     Indication: Venoocclusive liver disease
     Dosage: 25 MG/KG/DAY
     Route: 042
     Dates: start: 20210301, end: 20210309
  2. DEFITELIO [Suspect]
     Active Substance: DEFIBROTIDE SODIUM
     Dosage: 25 MG/KG/DAY
     Route: 042
     Dates: start: 20210311, end: 20210315

REACTIONS (6)
  - Haematemesis [Fatal]
  - Oesophageal varices haemorrhage [Recovering/Resolving]
  - Acute lymphocytic leukaemia [Fatal]
  - Disease progression [Fatal]
  - Ascites [Recovered/Resolved]
  - Condition aggravated [Recovered/Resolved]

NARRATIVE: CASE EVENT DATE: 20210301
